FAERS Safety Report 15319114 (Version 1)
Quarter: 2018Q3

REPORT INFORMATION
  Report Type: Spontaneous
  Country: US (occurrence: US)
  Receive Date: 20180820
  Receipt Date: 20180820
  Transmission Date: 20181010
  Serious: No
  Sender: FDA-Public Use
  Company Number: None

PATIENT
  Age: 64 Year
  Sex: Male

DRUGS (1)
  1. TALTZ [Suspect]
     Active Substance: IXEKIZUMAB
     Indication: PSORIATIC ARTHROPATHY
     Dosage: INJECT 89MG (1 PEN)  EVERY 4 WEEKS AS DIRECTED
     Route: 058
     Dates: start: 201806

REACTIONS (3)
  - Haematoma [None]
  - Abdominal abscess [None]
  - Animal attack [None]
